FAERS Safety Report 21810647 (Version 12)
Quarter: 2024Q2

REPORT INFORMATION
  Report Type: Spontaneous
  Country: US (occurrence: US)
  Receive Date: 20230103
  Receipt Date: 20240618
  Transmission Date: 20240715
  Serious: Yes (Hospitalization, Other)
  Sender: FDA-Public Use
  Company Number: US-GSK-US2022194806

PATIENT
  Age: 73 Year
  Sex: Female

DRUGS (4)
  1. NUCALA [Suspect]
     Active Substance: MEPOLIZUMAB
     Indication: Asthma
     Dosage: 100 MG
     Dates: start: 20231218
  2. NUCALA [Suspect]
     Active Substance: MEPOLIZUMAB
     Indication: Polyarteritis nodosa
  3. NUCALA [Suspect]
     Active Substance: MEPOLIZUMAB
     Indication: Asthma
     Dosage: UNK, 100MG/ML
     Dates: start: 20231218
  4. NUCALA [Suspect]
     Active Substance: MEPOLIZUMAB
     Indication: Polyarteritis nodosa

REACTIONS (13)
  - Hospitalisation [Unknown]
  - Knee operation [Unknown]
  - Malaise [Unknown]
  - Chest discomfort [Unknown]
  - Nasopharyngitis [Unknown]
  - Dyspnoea [Unknown]
  - Contusion [Unknown]
  - Wrong technique in device usage process [Unknown]
  - Exposure via skin contact [Unknown]
  - Accidental exposure to product [Unknown]
  - Product dose omission issue [Unknown]
  - Product use in unapproved indication [Unknown]
  - Product complaint [Unknown]

NARRATIVE: CASE EVENT DATE: 20240107
